FAERS Safety Report 4733274-8 (Version None)
Quarter: 2005Q3

REPORT INFORMATION
  Report Type: 
  Country: None (occurrence: None)
  Receive Date: 20050803
  Receipt Date: 20050620
  Transmission Date: 20060218
  Serious: Yes (Hospitalization)
  Sender: FDA-Public Use
  Company Number: PHHO2005JP09708

PATIENT
  Age: 71 Year
  Sex: Female

DRUGS (5)
  1. SALAGEN [Suspect]
     Indication: APTYALISM
     Dosage: 15 MG, QD
     Route: 048
     Dates: start: 20040624, end: 20050501
  2. ATARAX [Suspect]
  3. MIDAZOLAM HCL [Suspect]
  4. BAKUMONDOUTO [Suspect]
     Dates: start: 20040829, end: 20050501
  5. BONALON [Concomitant]
     Dates: start: 20040707, end: 20041201

REACTIONS (11)
  - BRONCHITIS [None]
  - COUGH [None]
  - DYSPNOEA [None]
  - HYPOXIA [None]
  - INTERSTITIAL LUNG DISEASE [None]
  - MYCOBACTERIAL INFECTION [None]
  - PNEUMATOSIS [None]
  - PYREXIA [None]
  - RESPIRATORY DEPRESSION [None]
  - SJOGREN'S SYNDROME [None]
  - STRIDOR [None]
